FAERS Safety Report 7269855-X (Version None)
Quarter: 2011Q1

REPORT INFORMATION
  Report Type: 
  Country: None (occurrence: None)
  Receive Date: 20110202
  Receipt Date: 20110127
  Transmission Date: 20110831
  Serious: Yes (Hospitalization, Other)
  Sender: FDA-Public Use
  Company Number: JP-ABBOTT-10P-087-0688228-00

PATIENT
  Sex: Female

DRUGS (3)
  1. HUMIRA [Suspect]
     Route: 058
     Dates: start: 20101123, end: 20101123
  2. HUMIRA [Suspect]
     Indication: CROHN'S DISEASE
     Route: 058
     Dates: start: 20101109, end: 20101109
  3. HUMIRA [Suspect]
     Dosage: WITHIN A CLINICAL TRIAL STUDY

REACTIONS (2)
  - LARGE INTESTINE PERFORATION [None]
  - INTESTINAL FISTULA INFECTION [None]
